FAERS Safety Report 24806156 (Version 1)
Quarter: 2025Q1

REPORT INFORMATION
  Report Type: Spontaneous
  Country: FR (occurrence: FR)
  Receive Date: 20250103
  Receipt Date: 20250103
  Transmission Date: 20250409
  Serious: Yes (Other)
  Sender: B BRAUN
  Company Number: FR-B.Braun Medical Inc.-2168354

PATIENT
  Age: 50 Year
  Sex: Female

DRUGS (8)
  1. METRONIDAZOLE [Suspect]
     Active Substance: METRONIDAZOLE
     Indication: Antibiotic prophylaxis
     Dates: start: 20241205
  2. TRACRIUM [Suspect]
     Active Substance: ATRACURIUM BESYLATE
  3. XYLOCAINE [Concomitant]
     Active Substance: LIDOCAINE HYDROCHLORIDE
  4. KETAMINE [Concomitant]
     Active Substance: KETAMINE
  5. SUFENTANIL [Concomitant]
     Active Substance: SUFENTANIL
  6. PROPOFOL [Concomitant]
     Active Substance: PROPOFOL
  7. DEXAMETHASONE [Suspect]
     Active Substance: DEXAMETHASONE
  8. GENTAMICIN SULFATE [Suspect]
     Active Substance: GENTAMICIN SULFATE

REACTIONS (2)
  - Erythema [Recovered/Resolved]
  - Tachycardia [Recovered/Resolved]
